FAERS Safety Report 16758385 (Version 1)
Quarter: 2019Q3

REPORT INFORMATION
  Report Type: Spontaneous
  Country: US (occurrence: US)
  Receive Date: 20190830
  Receipt Date: 20190830
  Transmission Date: 20191005
  Serious: No
  Sender: FDA-Public Use
  Company Number: US-009507513-1908USA007548

PATIENT
  Age: 53 Year
  Sex: Female

DRUGS (2)
  1. CUBICIN [Suspect]
     Active Substance: DAPTOMYCIN
     Indication: ENDOCARDITIS BACTERIAL
     Dosage: 6 MILLIGRAM/KILOGRAM, EVERY 48 H
     Dates: start: 20180908, end: 20180922
  2. CUBICIN [Suspect]
     Active Substance: DAPTOMYCIN
     Indication: CORYNEBACTERIUM BACTERAEMIA
     Dosage: UNK
     Dates: start: 2018, end: 2018

REACTIONS (1)
  - Product use in unapproved indication [Unknown]

NARRATIVE: CASE EVENT DATE: 20180908
